FAERS Safety Report 24562659 (Version 2)
Quarter: 2024Q4

REPORT INFORMATION
  Report Type: Spontaneous
  Country: SE (occurrence: SE)
  Receive Date: 20241029
  Receipt Date: 20241030
  Transmission Date: 20250115
  Serious: Yes (Life-Threatening, Hospitalization, Disabling, Other)
  Sender: MERCK
  Company Number: None

PATIENT
  Age: 67 Year
  Sex: Female

DRUGS (5)
  1. KEYTRUDA [Suspect]
     Active Substance: PEMBROLIZUMAB
     Indication: Lung neoplasm malignant
     Dosage: 400MG EVERY 6 WEEKS
     Route: 042
     Dates: start: 20220318, end: 20240227
  2. ESTRADIOL [Concomitant]
     Active Substance: ESTRADIOL
     Dosage: 1 VAGINAL TABLET 2 TIMES/WEEK
     Route: 067
  3. XGEVA [Concomitant]
     Active Substance: DENOSUMAB
     Dosage: 1 TIME EVERY 4 WEEKS
     Route: 058
     Dates: start: 20220311
  4. FLUCONAZOLE [Concomitant]
     Active Substance: FLUCONAZOLE
     Dosage: 1X1
     Route: 048
     Dates: start: 20231207
  5. CALCIUM CARBONATE\CHOLECALCIFEROL [Concomitant]
     Active Substance: CALCIUM CARBONATE\CHOLECALCIFEROL
     Dosage: 1X1
     Route: 048
     Dates: start: 20220311

REACTIONS (1)
  - Type 1 diabetes mellitus [Recovered/Resolved with Sequelae]

NARRATIVE: CASE EVENT DATE: 20231221
